FAERS Safety Report 9702256 (Version 1)
Quarter: 2013Q4

REPORT INFORMATION
  Report Type: Spontaneous
  Country: US (occurrence: None)
  Receive Date: 20131119
  Receipt Date: 20131119
  Transmission Date: 20140711
  Serious: Yes (Other)
  Sender: FDA-Public Use
  Company Number: AUR-APL-2013-09650

PATIENT
  Age: 58 Year
  Sex: Female
  Weight: 62.58 kg

DRUGS (2)
  1. MELOXICAM (MELOXICAM) [Suspect]
     Indication: ARTHRALGIA
     Dosage: 15 MG (15 MG,1 IN 1 D) , UNKNOWN
     Dates: start: 2013, end: 20131102
  2. CELEBREX (CELECOXIB) [Suspect]
     Indication: ARTHRALGIA
     Dosage: 200 MG (200 MG, 1 IN 1 D) , UNKNOWN
     Dates: start: 2013

REACTIONS (8)
  - Musculoskeletal stiffness [None]
  - Finger deformity [None]
  - Memory impairment [None]
  - Feeling of body temperature change [None]
  - Inguinal hernia [None]
  - Vulva cyst [None]
  - Pruritus [None]
  - Drug effect decreased [None]
